FAERS Safety Report 8934354 (Version 1)
Quarter: 2012Q4

REPORT INFORMATION
  Report Type: Report from Study
  Country: CA (occurrence: CA)
  Receive Date: 20121129
  Receipt Date: 20121129
  Transmission Date: 20130627
  Serious: Yes (Other)
  Sender: FDA-Public Use
  Company Number: CA-JNJFOC-20121111290

PATIENT
  Age: 52 Year
  Sex: Female
  Weight: 75.75 kg

DRUGS (10)
  1. REMICADE [Suspect]
     Indication: PSORIASIS
     Route: 042
     Dates: start: 20120925
  2. REMICADE [Suspect]
     Indication: PSORIASIS
     Route: 042
     Dates: start: 20121120
  3. METFORMIN [Concomitant]
     Route: 065
  4. GLICLAZIDE [Concomitant]
     Route: 065
  5. LIPIDIL [Concomitant]
     Route: 065
  6. HYDROL [Concomitant]
     Route: 065
  7. ATENOL [Concomitant]
     Route: 065
  8. RAMIPRIL [Concomitant]
     Route: 065
  9. BABY ASA [Concomitant]
     Route: 065
  10. HUMAN INSULIN [Concomitant]
     Dosage: 30/70
     Route: 065

REACTIONS (3)
  - Haematemesis [Recovered/Resolved]
  - Infusion related reaction [Recovered/Resolved]
  - Upper-airway cough syndrome [Recovered/Resolved]
